FAERS Safety Report 5629154-6 (Version None)
Quarter: 2008Q1

REPORT INFORMATION
  Report Type: 
  Country: None (occurrence: None)
  Receive Date: 20080217
  Receipt Date: 20080108
  Transmission Date: 20080703
  Serious: No
  Sender: FDA-Public Use
  Company Number: US-BAXTER-2008BH000483

PATIENT
  Age: 49 Year
  Sex: Male
  Weight: 76 kg

DRUGS (8)
  1. HEPARIN SODIUM [Suspect]
     Indication: THROMBOSIS PROPHYLAXIS
     Route: 010
     Dates: start: 20071231, end: 20071231
  2. HEPARIN SODIUM [Suspect]
     Route: 010
     Dates: start: 20071231, end: 20071231
  3. HEPARIN SODIUM [Suspect]
     Route: 010
     Dates: start: 20071231, end: 20071231
  4. HEPARIN SODIUM [Suspect]
     Route: 010
     Dates: start: 20071231, end: 20071231
  5. HEPARIN SODIUM [Suspect]
     Route: 010
     Dates: start: 20071231, end: 20071231
  6. HEPARIN SODIUM [Suspect]
     Route: 010
     Dates: start: 20071231, end: 20071231
  7. HEPARIN SODIUM [Suspect]
     Route: 010
     Dates: start: 20071231, end: 20071231
  8. SODIUM CHLORIDE [Concomitant]
     Indication: HAEMODIALYSIS
     Dosage: DOSE UNIT:UNKNOWN
     Route: 065

REACTIONS (2)
  - FEELING HOT [None]
  - HEADACHE [None]
